FAERS Safety Report 5371591-1 (Version None)
Quarter: 2007Q2

REPORT INFORMATION
  Report Type: 
  Country: None (occurrence: None)
  Receive Date: 20070627
  Receipt Date: 20070615
  Transmission Date: 20071010
  Serious: Yes (Hospitalization, Disabling)
  Sender: FDA-Public Use
  Company Number: FR-JNJFOC-20070603871

PATIENT
  Age: 36 Year
  Sex: Male

DRUGS (6)
  1. REMICADE [Suspect]
     Route: 042
  2. REMICADE [Suspect]
     Route: 042
  3. REMICADE [Suspect]
     Route: 042
  4. REMICADE [Suspect]
     Indication: COLITIS ULCERATIVE
     Route: 042
  5. METHOTREXATE [Suspect]
     Indication: COLITIS ULCERATIVE
     Route: 030
  6. SPECIAFOLDINE [Concomitant]
     Route: 048

REACTIONS (11)
  - ASTHENIA [None]
  - CHEST DISCOMFORT [None]
  - EYE IRRITATION [None]
  - LEUKOCYTOSIS [None]
  - LIP OEDEMA [None]
  - OEDEMA PERIPHERAL [None]
  - PAIN IN EXTREMITY [None]
  - PYREXIA [None]
  - RASH ERYTHEMATOUS [None]
  - RASH PRURITIC [None]
  - VOMITING [None]
